FAERS Safety Report 13135475 (Version 3)
Quarter: 2017Q2

REPORT INFORMATION
  Report Type: Spontaneous
  Country: DK (occurrence: DK)
  Receive Date: 20170120
  Receipt Date: 20170522
  Transmission Date: 20170830
  Serious: Yes (Congenital Anomaly)
  Sender: FDA-Public Use
  Company Number: DK-SA-2017SA008485

PATIENT
  Sex: Male
  Weight: 3.7 kg

DRUGS (3)
  1. MORFIN [Concomitant]
     Active Substance: MORPHINE SULFATE
     Route: 064
     Dates: start: 20150603, end: 20150603
  2. SERTRALINE [Suspect]
     Active Substance: SERTRALINE HYDROCHLORIDE
     Dosage: DOSE: 1AND HALF TABLET /DAILY, STRENGHT: 150 MG IN TOTAL
     Route: 064
  3. FEXOFENADINE [Suspect]
     Active Substance: FEXOFENADINE\FEXOFENADINE HYDROCHLORIDE
     Dosage: DOSE: 2, STRENGHT: 180MG
     Route: 064
     Dates: end: 201611

REACTIONS (3)
  - Dyspnoea [Recovered/Resolved]
  - Exposure during breast feeding [Unknown]
  - Foetal exposure during pregnancy [Unknown]

NARRATIVE: CASE EVENT DATE: 20150606
